FAERS Safety Report 10795039 (Version 1)
Quarter: 2015Q1

REPORT INFORMATION
  Report Type: Spontaneous
  Country: US (occurrence: US)
  Receive Date: 20150214
  Receipt Date: 20150214
  Transmission Date: 20150721
  Serious: No
  Sender: FDA-Public Use
  Company Number: US-GLAXOSMITHKLINE-A1085126A

PATIENT

DRUGS (5)
  1. COMBIVENT [Concomitant]
     Active Substance: ALBUTEROL SULFATE\IPRATROPIUM BROMIDE
  2. FLOVENT [Suspect]
     Active Substance: FLUTICASONE PROPIONATE
     Indication: ASTHMA
     Dosage: 110 MCG
     Route: 055
     Dates: start: 20140614
  3. DILTIAZEM [Concomitant]
     Active Substance: DILTIAZEM
  4. FLOVENT [Suspect]
     Active Substance: FLUTICASONE PROPIONATE
     Indication: CHRONIC OBSTRUCTIVE PULMONARY DISEASE
  5. XARELTO [Concomitant]
     Active Substance: RIVAROXABAN

REACTIONS (4)
  - Dyspnoea [Unknown]
  - Expired product administered [Unknown]
  - Drug ineffective [Not Recovered/Not Resolved]
  - Discomfort [Unknown]

NARRATIVE: CASE EVENT DATE: 201407
